FAERS Safety Report 4273098-1 (Version None)
Quarter: 2004Q1

REPORT INFORMATION
  Report Type: 
  Country: None (occurrence: None)
  Receive Date: 20040116
  Receipt Date: 20040112
  Transmission Date: 20041129
  Serious: Yes (Other)
  Sender: FDA-Public Use
  Company Number: PHBS2004BR00790

PATIENT
  Age: 15 Year
  Sex: Female

DRUGS (2)
  1. TEGRETOL [Suspect]
     Indication: EPILEPSY
     Dosage: 400 MG, BID
     Route: 048
  2. TONOPAN (NCH) [Suspect]
     Indication: EPILEPSY
     Route: 048

REACTIONS (2)
  - CONFUSIONAL STATE [None]
  - SOMNOLENCE [None]
